FAERS Safety Report 24218334 (Version 2)
Quarter: 2025Q2

REPORT INFORMATION
  Report Type: Spontaneous
  Country: CN (occurrence: CN)
  Receive Date: 20240816
  Receipt Date: 20250608
  Transmission Date: 20250717
  Serious: Yes (Other)
  Sender: COHERUS
  Company Number: CN-SHANGHAI JUNSHI BIOSCIENCES CO., LTD.-CN2024010961

PATIENT

DRUGS (6)
  1. TORIPALIMAB [Suspect]
     Active Substance: TORIPALIMAB
     Indication: Bladder cancer
     Dosage: 160 MG, Q3WEEKS
     Route: 041
     Dates: start: 20231117, end: 20231117
  2. TORIPALIMAB [Suspect]
     Active Substance: TORIPALIMAB
     Dosage: 160 MG, Q3W
     Route: 041
     Dates: start: 20240706, end: 20240706
  3. TORIPALIMAB [Suspect]
     Active Substance: TORIPALIMAB
     Route: 041
     Dates: start: 20240727, end: 20240727
  4. DISITAMAB VEDOTIN [Suspect]
     Active Substance: DISITAMAB VEDOTIN
     Indication: Bladder cancer
     Dosage: 120 MG, Q2WEEKS
     Dates: start: 20231117
  5. DISITAMAB VEDOTIN [Suspect]
     Active Substance: DISITAMAB VEDOTIN
     Dosage: 120 MG, Q2W
     Route: 041
     Dates: start: 20240706, end: 20240706
  6. DISITAMAB VEDOTIN [Suspect]
     Active Substance: DISITAMAB VEDOTIN
     Dosage: 120 MG, Q2W
     Route: 041
     Dates: start: 20240727, end: 20240727

REACTIONS (2)
  - White blood cell count decreased [Recovering/Resolving]
  - Off label use [Unknown]

NARRATIVE: CASE EVENT DATE: 20231117
